FAERS Safety Report 9963589 (Version 1)
Quarter: 2014Q1

REPORT INFORMATION
  Report Type: Report from Study
  Country: US (occurrence: US)
  Receive Date: 20140305
  Receipt Date: 20140305
  Transmission Date: 20141002
  Serious: No
  Sender: FDA-Public Use
  Company Number: US-ABBVIE-13P-163-1118269-00

PATIENT
  Age: 31 Year
  Sex: Male

DRUGS (4)
  1. HUMIRA [Suspect]
     Indication: CROHN^S DISEASE
     Dates: start: 20130221
  2. VITAMIN D3 [Concomitant]
     Indication: CROHN^S DISEASE
     Dosage: DAILY
  3. IRON SUPPLEMENT [Concomitant]
     Indication: CROHN^S DISEASE
     Dosage: DAILY
  4. TRAMADOL [Concomitant]
     Indication: GASTROINTESTINAL PAIN

REACTIONS (3)
  - Gastrointestinal fistula [Not Recovered/Not Resolved]
  - Fistula discharge [Not Recovered/Not Resolved]
  - Pruritus [Not Recovered/Not Resolved]
